FAERS Safety Report 4369942-X (Version None)
Quarter: 2004Q2

REPORT INFORMATION
  Report Type: 
  Country: None (occurrence: None)
  Receive Date: 20040527
  Receipt Date: 20040506
  Transmission Date: 20050107
  Serious: Yes (Other)
  Sender: FDA-Public Use
  Company Number: EWC040539174

PATIENT
  Age: 63 Year
  Sex: Male
  Weight: 99 kg

DRUGS (7)
  1. HUMATROPE [Suspect]
     Indication: GROWTH HORMONE DEFICIENCY
     Dosage: 0.1 MG
     Dates: start: 19970101, end: 20040329
  2. SUSTANON [Concomitant]
  3. THYROXINE [Concomitant]
  4. NORVASC [Concomitant]
  5. FUROSEMIDE [Concomitant]
  6. FOSAMAX [Concomitant]
  7. LOSEC (OMEPRAZOLE) [Concomitant]

REACTIONS (1)
  - PROSTATE CANCER [None]
